FAERS Safety Report 21780940 (Version 12)
Quarter: 2024Q3

REPORT INFORMATION
  Report Type: Spontaneous
  Country: US (occurrence: US)
  Receive Date: 20221227
  Receipt Date: 20240909
  Transmission Date: 20241017
  Serious: Yes (Other)
  Sender: CSL BEHRING
  Company Number: US-BEH-2022153474

PATIENT
  Age: 29 Year
  Sex: Female
  Weight: 91 kg

DRUGS (11)
  1. HAEGARDA [Suspect]
     Active Substance: HUMAN C1-ESTERASE INHIBITOR
     Indication: Hereditary angioedema
     Dosage: 3000 INTERNATIONAL UNIT, BIW
     Route: 058
     Dates: start: 20200917
  2. HAEGARDA [Suspect]
     Active Substance: HUMAN C1-ESTERASE INHIBITOR
     Indication: Prophylaxis
     Dosage: 3000 INTERNATIONAL UNIT, BIW
     Route: 058
     Dates: start: 202009
  3. HAEGARDA [Suspect]
     Active Substance: HUMAN C1-ESTERASE INHIBITOR
     Dosage: 3000 INTERNATIONAL UNIT, BIW
     Route: 058
     Dates: start: 20200916
  4. HAEGARDA [Suspect]
     Active Substance: HUMAN C1-ESTERASE INHIBITOR
     Dosage: 5000 INTERNATIONAL UNIT/KILOGRAM, BIW
     Route: 065
  5. HAEGARDA [Suspect]
     Active Substance: HUMAN C1-ESTERASE INHIBITOR
     Dosage: 3000 INTERNATIONAL UNIT, BIW
     Route: 042
     Dates: start: 202009
  6. HAEGARDA [Suspect]
     Active Substance: HUMAN C1-ESTERASE INHIBITOR
     Dosage: 5000 IU, BIW
     Route: 058
     Dates: start: 202009
  7. HAEGARDA [Suspect]
     Active Substance: HUMAN C1-ESTERASE INHIBITOR
     Indication: Hereditary angioedema
     Dosage: 2000 INTERNATIONAL UNIT, BIW
     Route: 058
     Dates: start: 20200917
  8. HAEGARDA [Suspect]
     Active Substance: HUMAN C1-ESTERASE INHIBITOR
     Indication: Prophylaxis
     Dosage: 2000 INTERNATIONAL UNIT, BIW
     Route: 058
     Dates: start: 202009
  9. HAEGARDA [Suspect]
     Active Substance: HUMAN C1-ESTERASE INHIBITOR
     Dosage: 2000 INTERNATIONAL UNIT, BIW
     Route: 058
     Dates: start: 20200916
  10. HAEGARDA [Suspect]
     Active Substance: HUMAN C1-ESTERASE INHIBITOR
     Dosage: 2000 INTERNATIONAL UNIT, BIW
     Route: 042
     Dates: start: 202009
  11. HAEGARDA [Suspect]
     Active Substance: HUMAN C1-ESTERASE INHIBITOR
     Dosage: 5000 IU, BIW
     Route: 058
     Dates: start: 202009

REACTIONS (23)
  - Hereditary angioedema [Recovered/Resolved]
  - Maternal exposure during pregnancy [Recovered/Resolved]
  - Hereditary angioedema [Recovered/Resolved]
  - Maternal exposure during pregnancy [Recovered/Resolved]
  - Hereditary angioedema [Recovered/Resolved]
  - Maternal exposure during pregnancy [Recovered/Resolved]
  - Hereditary angioedema [Recovered/Resolved]
  - Maternal exposure during breast feeding [Recovered/Resolved]
  - Product dose omission issue [Unknown]
  - Hereditary angioedema [Recovered/Resolved]
  - Hereditary angioedema [Recovered/Resolved]
  - Product dose omission issue [Recovered/Resolved]
  - Inappropriate schedule of product administration [Recovered/Resolved]
  - Hereditary angioedema [Recovered/Resolved]
  - Maternal exposure during breast feeding [Recovered/Resolved]
  - Product dose omission issue [Recovered/Resolved]
  - Off label use [Unknown]
  - Hereditary angioedema [Recovered/Resolved]
  - Hereditary angioedema [Recovered/Resolved]
  - Product dose omission issue [Unknown]
  - Hereditary angioedema [Recovered/Resolved]
  - Hereditary angioedema [Recovered/Resolved]
  - Product dose omission in error [Unknown]

NARRATIVE: CASE EVENT DATE: 20221214
